FAERS Safety Report 6693146-9 (Version None)
Quarter: 2010Q2

REPORT INFORMATION
  Report Type: 
  Country: None (occurrence: None)
  Receive Date: 20100421
  Receipt Date: 20100421
  Transmission Date: 20101027
  Serious: Yes (Other)
  Sender: FDA-Public Use
  Company Number: None

PATIENT
  Sex: Female

DRUGS (1)
  1. BETASERON [Suspect]
     Indication: MULTIPLE SCLEROSIS
     Dosage: 0.25MG EVERY OTHER DAY SQ
     Route: 058
     Dates: start: 20100216, end: 20100416

REACTIONS (3)
  - FEELING ABNORMAL [None]
  - HEPATIC ENZYME INCREASED [None]
  - WHITE BLOOD CELL COUNT DECREASED [None]
